FAERS Safety Report 16971978 (Version 1)
Quarter: 2019Q4

REPORT INFORMATION
  Report Type: Spontaneous
  Country: US (occurrence: US)
  Receive Date: 20191029
  Receipt Date: 20191029
  Transmission Date: 20200122
  Serious: Yes (Life-Threatening, Hospitalization)
  Sender: FDA-Public Use
  Company Number: US-TEVA-2019-US-1128907

PATIENT
  Age: 32 Year
  Sex: Male

DRUGS (1)
  1. LOPERAMIDE [Suspect]
     Active Substance: LOPERAMIDE
     Indication: DRUG WITHDRAWAL SYNDROME
     Dosage: 250 TABLETS
     Route: 065

REACTIONS (16)
  - Gastrointestinal sounds abnormal [Recovering/Resolving]
  - Sensory loss [Recovering/Resolving]
  - Rhabdomyolysis [Unknown]
  - Hypotension [Unknown]
  - Bundle branch block left [Unknown]
  - Acute kidney injury [Recovering/Resolving]
  - Respiratory depression [Recovering/Resolving]
  - Compartment syndrome [Unknown]
  - Intentional overdose [Unknown]
  - Lethargy [Recovering/Resolving]
  - Asthenia [Unknown]
  - Leukocytosis [Unknown]
  - Rales [Recovering/Resolving]
  - Electrocardiogram QT prolonged [Recovering/Resolving]
  - Electrocardiogram QRS complex prolonged [Recovering/Resolving]
  - Pyrexia [Unknown]
